FAERS Safety Report 5632280-9 (Version None)
Quarter: 2008Q1

REPORT INFORMATION
  Report Type: 
  Country: None (occurrence: None)
  Receive Date: 20080220
  Receipt Date: 20080206
  Transmission Date: 20080703
  Serious: Yes (Life-Threatening, Hospitalization)
  Sender: FDA-Public Use
  Company Number: PHEH2008US01598

PATIENT
  Sex: Male
  Weight: 0.771 kg

DRUGS (4)
  1. LETROZOLE [Suspect]
     Route: 064
  2. REBIF [Suspect]
     Dosage: MATERNAL DOSE: 44 MCG, THREE TIMES WEEKLY
     Route: 064
  3. GONAL-F [Suspect]
     Route: 064
  4. VITAMIN TAB [Suspect]
     Route: 064

REACTIONS (4)
  - DRUG EXPOSURE BEFORE PREGNANCY [None]
  - FOETAL GROWTH RETARDATION [None]
  - MECHANICAL VENTILATION [None]
  - PREMATURE BABY [None]
